FAERS Safety Report 23053089 (Version 1)
Quarter: 2023Q4

REPORT INFORMATION
  Report Type: Report from Study
  Country: CA (occurrence: CA)
  Receive Date: 20231011
  Receipt Date: 20231011
  Transmission Date: 20240109
  Serious: Yes (Other)
  Sender: FDA-Public Use
  Company Number: CA-002147023-NVSC2022CA111958

PATIENT
  Sex: Male
  Weight: 77 kg

DRUGS (3)
  1. PIRFENIDONE [Suspect]
     Active Substance: PIRFENIDONE
     Indication: Idiopathic pulmonary fibrosis
     Dosage: 2403 MG (TABLET)
     Route: 048
  2. PIRFENIDONE [Suspect]
     Active Substance: PIRFENIDONE
     Indication: Interstitial lung disease
     Dosage: UNK
     Route: 048
  3. ALBUTEROL [Concomitant]
     Active Substance: ALBUTEROL
     Indication: Product used for unknown indication
     Dosage: 400 UG
     Route: 065

REACTIONS (13)
  - Bronchiectasis [Unknown]
  - Interstitial lung disease [Unknown]
  - Pulmonary fibrosis [Unknown]
  - Disease progression [Unknown]
  - Pulmonary mass [Unknown]
  - Atelectasis [Unknown]
  - Lung cyst [Unknown]
  - Lung diffusion test abnormal [Unknown]
  - Renal cyst [Unknown]
  - Arteriosclerosis [Unknown]
  - Aortic valve calcification [Unknown]
  - Forced vital capacity decreased [Unknown]
  - Drug ineffective [Unknown]
